FAERS Safety Report 10430317 (Version 3)
Quarter: 2014Q3

REPORT INFORMATION
  Report Type: Spontaneous
  Country: US (occurrence: US)
  Receive Date: 20140904
  Receipt Date: 20140917
  Transmission Date: 20150326
  Serious: Yes (Other)
  Sender: FDA-Public Use
  Company Number: US-PERRIGO-14US008531

PATIENT
  Age: 48 Year
  Sex: Female
  Weight: 113.38 kg

DRUGS (3)
  1. VISINE L.R. [Concomitant]
     Active Substance: OXYMETAZOLINE HYDROCHLORIDE
     Indication: PRODUCT USED FOR UNKNOWN INDICATION
     Route: 045
     Dates: start: 2014
  2. SALINE NASAL [Suspect]
     Active Substance: SODIUM CHLORIDE
     Indication: NASAL DRYNESS
     Dosage: 2 SPRAYS IN EACH NOSTRIL, BID
     Route: 045
     Dates: start: 201408, end: 201408
  3. SALINE NASAL [Suspect]
     Active Substance: SODIUM CHLORIDE
     Dosage: 2 SPRAYS IN EACH NOSTRIL, BID
     Route: 045
     Dates: start: 2014

REACTIONS (1)
  - Hallucination [Recovered/Resolved]

NARRATIVE: CASE EVENT DATE: 20140811
